FAERS Safety Report 24718651 (Version 2)
Quarter: 2025Q3

REPORT INFORMATION
  Report Type: Spontaneous
  Country: RS (occurrence: RS)
  Receive Date: 20241210
  Receipt Date: 20250809
  Transmission Date: 20251021
  Serious: Yes (Other)
  Sender: ALEXION PHARMACEUTICALS
  Company Number: RS-ASTRAZENECA-202412BKN005223RS

PATIENT
  Sex: Female

DRUGS (11)
  1. SYMBICORT [Suspect]
     Active Substance: BUDESONIDE\FORMOTEROL FUMARATE DIHYDRATE
  2. OXIS [Suspect]
     Active Substance: FORMOTEROL FUMARATE
     Route: 065
  3. PULMICORT TURBUHALER [Suspect]
     Active Substance: BUDESONIDE
  4. DEXAMETHASONE [Concomitant]
     Active Substance: DEXAMETHASONE
  5. Desloratadine alvogen [Concomitant]
     Dosage: 5 MILLIGRAM, BID
  6. MONTELUKAST [Concomitant]
     Active Substance: MONTELUKAST
     Dosage: 10 MILLIGRAM, QD
  7. FENOTEROL [Concomitant]
     Active Substance: FENOTEROL
  8. Sabax ipratropium bromide [Concomitant]
  9. BECLOMETHASONE [Concomitant]
     Active Substance: BECLOMETHASONE
  10. PREDNISONE [Concomitant]
     Active Substance: PREDNISONE
  11. LEVOCETIRIZINE [Concomitant]
     Active Substance: LEVOCETIRIZINE
     Dosage: 5 MILLIGRAM, QD

REACTIONS (6)
  - Asphyxia [Recovered/Resolved]
  - Asthma [Unknown]
  - Nasal congestion [Unknown]
  - Fatigue [Unknown]
  - Gait disturbance [Unknown]
  - Dyspnoea [Unknown]

NARRATIVE: CASE EVENT DATE: 20200901
